FAERS Safety Report 5491333-9 (Version None)
Quarter: 2007Q4

REPORT INFORMATION
  Report Type: 
  Country: None (occurrence: None)
  Receive Date: 20071017
  Receipt Date: 20071010
  Transmission Date: 20080405
  Serious: Yes (Death, Hospitalization, Other)
  Sender: FDA-Public Use
  Company Number: PHBS2006JP14106

PATIENT
  Age: 66 Year
  Sex: Female

DRUGS (6)
  1. CYCLOSPORINE [Suspect]
     Indication: ANTI-NEUTROPHIL CYTOPLASMIC ANTIBODY POSITIVE VASCULITIS
     Dosage: ORAL; 75 MG/D, ORAL
     Route: 048
     Dates: start: 20050601
  2. PREDNISOLONE [Suspect]
     Indication: ANTI-NEUTROPHIL CYTOPLASMIC ANTIBODY POSITIVE VASCULITIS
     Dosage: ORAL; 22.5 MG/D, ORAL
     Route: 048
     Dates: start: 20041201
  3. PREDNISOLONE [Suspect]
     Indication: ANTI-NEUTROPHIL CYTOPLASMIC ANTIBODY POSITIVE VASCULITIS
     Dosage: ORAL; 22.5 MG/D, ORAL
     Route: 048
     Dates: start: 20050601
  4. CYCLOPHOSPHAMIDE [Concomitant]
  5. WARFARIN SODIUM [Concomitant]
  6. DENOSINE (GANCICLOVIR) [Concomitant]

REACTIONS (7)
  - BRAIN ABSCESS [None]
  - CYTOMEGALOVIRUS CHORIORETINITIS [None]
  - EYE HAEMORRHAGE [None]
  - HERPES ZOSTER [None]
  - PNEUMONIA ESCHERICHIA [None]
  - RETINAL EXUDATES [None]
  - VISUAL ACUITY REDUCED [None]
